FAERS Safety Report 9887441 (Version 1)
Quarter: 2014Q1

REPORT INFORMATION
  Report Type: Spontaneous
  Country: US (occurrence: None)
  Receive Date: 20140207
  Receipt Date: 20140207
  Transmission Date: 20141002
  Serious: Yes (Hospitalization)
  Sender: FDA-Public Use
  Company Number: None

PATIENT
  Age: 52 Year
  Sex: Male
  Weight: 86.18 kg

DRUGS (1)
  1. DICLOFENAC [Suspect]
     Indication: PAIN
     Route: 048
     Dates: start: 20100205, end: 20100417

REACTIONS (2)
  - Drug hypersensitivity [None]
  - Erythema multiforme [None]
